FAERS Safety Report 17861967 (Version 1)
Quarter: 2020Q2

REPORT INFORMATION
  Report Type: Report from Study
  Country: US (occurrence: US)
  Receive Date: 20200604
  Receipt Date: 20200604
  Transmission Date: 20200714
  Serious: Yes (Other)
  Sender: FDA-Public Use
  Company Number: US-MYLANLABS-2020M1043315

PATIENT
  Age: 38 Year
  Sex: Female
  Weight: 106 kg

DRUGS (3)
  1. GLATIRAMER ACETATE INJECTION [Suspect]
     Active Substance: GLATIRAMER ACETATE
     Indication: RELAPSING-REMITTING MULTIPLE SCLEROSIS
     Dosage: 20 MILLIGRAM, QD
     Route: 058
  2. GLATIRAMER ACETATE INJECTION [Suspect]
     Active Substance: GLATIRAMER ACETATE
     Dosage: 20 MILLIGRAM, QD
     Route: 065
     Dates: start: 20200418
  3. GLATIRAMER ACETATE INJECTION [Suspect]
     Active Substance: GLATIRAMER ACETATE
     Dosage: 20 MILLIGRAM, QD
     Route: 065

REACTIONS (9)
  - Injection site mass [Unknown]
  - Drug ineffective [Unknown]
  - Injection site pruritus [Unknown]
  - Dyspnoea [Unknown]
  - Injection site pain [Unknown]
  - Condition aggravated [Unknown]
  - Off label use [Recovered/Resolved]
  - Headache [Unknown]
  - Chest discomfort [Unknown]

NARRATIVE: CASE EVENT DATE: 20200418
